FAERS Safety Report 17771051 (Version 1)
Quarter: 2020Q2

REPORT INFORMATION
  Report Type: Spontaneous
  Country: US (occurrence: US)
  Receive Date: 20200512
  Receipt Date: 20200512
  Transmission Date: 20200714
  Serious: Yes (Other)
  Sender: FDA-Public Use
  Company Number: US-SA-2020SA112641

PATIENT
  Age: 34 Year

DRUGS (1)
  1. ALLERLIFE ENERGIZE [Suspect]
     Active Substance: CAFFEINE\DIETARY SUPPLEMENT

REACTIONS (1)
  - Haematochezia [Unknown]
